FAERS Safety Report 8542129-2 (Version None)
Quarter: 2012Q3

REPORT INFORMATION
  Report Type: 
  Country: None (occurrence: None)
  Receive Date: 20120726
  Receipt Date: 20111018
  Transmission Date: 20120928
  Serious: No
  Sender: FDA-Public Use
  Company Number: US-ASTRAZENECA-2011SE62926

PATIENT
  Age: 66 Year
  Sex: Male
  Weight: 79.4 kg

DRUGS (7)
  1. AMBIENT [Concomitant]
  2. LITHIUM CARBONATE [Concomitant]
  3. WELBUTERIN [Concomitant]
  4. SYNTHROID [Concomitant]
  5. SEROQUEL [Suspect]
     Indication: BIPOLAR DISORDER
     Route: 048
     Dates: start: 19980101
  6. SEROQUEL [Suspect]
     Indication: SLEEP DISORDER
     Route: 048
     Dates: start: 19980101
  7. REQUIP [Concomitant]

REACTIONS (4)
  - SOMNAMBULISM [None]
  - OFF LABEL USE [None]
  - STUPOR [None]
  - INSOMNIA [None]
